FAERS Safety Report 10029263 (Version 2)
Quarter: 2014Q1

REPORT INFORMATION
  Report Type: Spontaneous
  Country: AT (occurrence: AT)
  Receive Date: 20140321
  Receipt Date: 20140321
  Transmission Date: 20141002
  Serious: Yes (Other)
  Sender: FDA-Public Use
  Company Number: PHHY2014AT020636

PATIENT
  Sex: Male

DRUGS (6)
  1. EXFORGE [Suspect]
     Dosage: 1 DF, BID (VALS 80 MG, AMLO 5MG)
  2. EXFORGE [Suspect]
     Dosage: 2 DF (1DF 160/5MG IN MORNING AND 1 DF 80/5 MG IN EVENING)
  3. NOMEXOR [Suspect]
     Dosage: UNK UKN, UNK
  4. SORTIS [Concomitant]
     Dosage: UNK UKN, UNK
  5. EBETREXAT (METHOTREXATE) [Concomitant]
     Dosage: UNK UKN, (EVERY FRIDAY )
  6. FOLSAN [Concomitant]
     Dosage: UNK UKN, UNK

REACTIONS (8)
  - Encephalopathy [Unknown]
  - Disturbance in attention [Unknown]
  - Eyelid disorder [Unknown]
  - Blood pressure increased [Unknown]
  - Somnolence [Unknown]
  - Vertigo [Unknown]
  - Headache [Unknown]
  - Ear disorder [Unknown]
